FAERS Safety Report 4658509-1 (Version None)
Quarter: 2005Q2

REPORT INFORMATION
  Report Type: 
  Country: None (occurrence: None)
  Receive Date: 20050511
  Receipt Date: 20050224
  Transmission Date: 20051028
  Serious: Yes (Hospitalization)
  Sender: FDA-Public Use
  Company Number: US-BOEHRINGER INGELHEIM PHARMMACEUTICALS, INC.-2005-BP-02975BP

PATIENT
  Age: 72 Year
  Sex: Male

DRUGS (7)
  1. CATAPRES-TTS-1 [Suspect]
     Indication: HYPERTENSION
     Route: 061
     Dates: start: 20040101
  2. ATENOL [Concomitant]
     Indication: HYPERTENSION
  3. NORVASC [Concomitant]
     Indication: HYPERTENSION
  4. PRILOSEC [Concomitant]
  5. SYNTHROID [Concomitant]
  6. FLOMAX [Concomitant]
  7. LIPITOR [Concomitant]

REACTIONS (7)
  - BLOOD PRESSURE INCREASED [None]
  - CEREBROVASCULAR ACCIDENT [None]
  - COORDINATION ABNORMAL [None]
  - DYSARTHRIA [None]
  - FACIAL PALSY [None]
  - HIP ARTHROPLASTY [None]
  - TRANSIENT ISCHAEMIC ATTACK [None]
